FAERS Safety Report 5723705-9 (Version None)
Quarter: 2008Q2

REPORT INFORMATION
  Report Type: 
  Country: None (occurrence: None)
  Receive Date: 20080429
  Receipt Date: 20080429
  Transmission Date: 20081010
  Serious: Yes (Disabling)
  Sender: FDA-Public Use
  Company Number: None

PATIENT
  Age: 52 Year
  Sex: Female
  Weight: 56.6996 kg

DRUGS (2)
  1. LEVAQUIN [Suspect]
     Indication: PNEUMONIA
     Dosage: 500MG 15 DAYS ORAL
     Route: 048
     Dates: start: 20030706, end: 20030720
  2. LEVAQUIN [Suspect]
     Indication: PNEUMONIA
     Dosage: 500MG 15 DAYS ORAL
     Route: 048
     Dates: start: 20021023

REACTIONS (26)
  - ANXIETY [None]
  - ARTHRALGIA [None]
  - ASTHENIA [None]
  - BURNING SENSATION [None]
  - CHILLS [None]
  - DEPRESSION [None]
  - DIZZINESS [None]
  - FATIGUE [None]
  - GAIT DISTURBANCE [None]
  - GLOSSODYNIA [None]
  - HYPERHIDROSIS [None]
  - HYPOAESTHESIA [None]
  - INSOMNIA [None]
  - IRRITABILITY [None]
  - MEMORY IMPAIRMENT [None]
  - MUSCLE SPASMS [None]
  - MUSCLE TWITCHING [None]
  - MYALGIA [None]
  - NERVOUSNESS [None]
  - NEURALGIA [None]
  - PARAESTHESIA [None]
  - TENDON PAIN [None]
  - TINNITUS [None]
  - TREMOR [None]
  - VISION BLURRED [None]
  - WEIGHT DECREASED [None]
